FAERS Safety Report 8399847-9 (Version None)
Quarter: 2012Q2

REPORT INFORMATION
  Report Type: 
  Country: None (occurrence: None)
  Receive Date: 20120531
  Receipt Date: 20120525
  Transmission Date: 20120825
  Serious: Yes (Life-Threatening, Other)
  Sender: FDA-Public Use
  Company Number: GR-PFIZER INC-2012126685

PATIENT
  Age: 86 Year
  Sex: Female
  Weight: 67 kg

DRUGS (6)
  1. IRBESARTAN + HYDROCHLOROTHIAZIDE [Concomitant]
     Dosage: 12.5 /150, 1X/DAY
     Route: 048
  2. LYRICA [Suspect]
     Indication: HEADACHE
     Dosage: 75 MG, 2X/DAY
     Route: 048
     Dates: start: 20120325, end: 20120525
  3. SINTROM [Concomitant]
     Dosage: 1 MG (QUARTER OF 4 MG) , 1X/DAY
     Route: 048
  4. LASIX [Concomitant]
     Dosage: 20 MG (HALF OF 40 MG), 1X/DAY
     Route: 048
  5. ADALAT [Concomitant]
     Dosage: 30 MG, 1X/DAY
     Route: 048
  6. PANTOPRAZOLE [Concomitant]
     Dosage: 40 MG, 1X/DAY
     Route: 048

REACTIONS (7)
  - DYSPNOEA [None]
  - OEDEMA PERIPHERAL [None]
  - FATIGUE [None]
  - RIGHT VENTRICULAR FAILURE [None]
  - PULMONARY CONGESTION [None]
  - VENOUS PRESSURE JUGULAR INCREASED [None]
  - PULMONARY ARTERIAL PRESSURE INCREASED [None]
